FAERS Safety Report 4354766-X (Version None)
Quarter: 2004Q2

REPORT INFORMATION
  Report Type: 
  Country: None (occurrence: None)
  Receive Date: 20040507
  Receipt Date: 20040430
  Transmission Date: 20050107
  Serious: Yes (Hospitalization)
  Sender: FDA-Public Use
  Company Number: IE-AMGEN-UK074936

PATIENT
  Age: 34 Year
  Sex: Male

DRUGS (1)
  1. NEUPOGEN [Suspect]
     Indication: AGRANULOCYTOSIS

REACTIONS (1)
  - CROHN'S DISEASE [None]
